FAERS Safety Report 20125898 (Version 1)
Quarter: 2021Q4

REPORT INFORMATION
  Report Type: Spontaneous
  Country: CN (occurrence: CN)
  Receive Date: 20211129
  Receipt Date: 20211129
  Transmission Date: 20220304
  Serious: Yes (Hospitalization)
  Sender: FDA-Public Use
  Company Number: CN-PFIZER INC-202101630445

PATIENT
  Age: 30 Year
  Sex: Female
  Weight: 71 kg

DRUGS (1)
  1. METHOTREXATE [Suspect]
     Active Substance: METHOTREXATE
     Indication: Therapeutic procedure
     Dosage: 28.5 MG, 1X/DAY
     Route: 030
     Dates: start: 20211104, end: 20211114

REACTIONS (7)
  - Rash [Recovering/Resolving]
  - Rash pruritic [Recovering/Resolving]
  - Scratch [Recovering/Resolving]
  - Rash erythematous [Recovering/Resolving]
  - Pruritus [Recovering/Resolving]
  - Mouth ulceration [Recovering/Resolving]
  - Off label use [Unknown]

NARRATIVE: CASE EVENT DATE: 20211113
